FAERS Safety Report 5256008-X (Version None)
Quarter: 2007Q1

REPORT INFORMATION
  Report Type: 
  Country: None (occurrence: None)
  Receive Date: 20070306
  Receipt Date: 20070302
  Transmission Date: 20070707
  Serious: Yes (Life-Threatening, Other)
  Sender: FDA-Public Use
  Company Number: PHBS2007VN03700

PATIENT
  Age: 76 Year
  Weight: 52 kg

DRUGS (1)
  1. AREDIA [Suspect]
     Indication: METASTASES TO BONE
     Dosage: 30 MG, UNK
     Route: 042
     Dates: start: 20070227

REACTIONS (3)
  - CHILLS [None]
  - LOSS OF CONSCIOUSNESS [None]
  - PYREXIA [None]
